FAERS Safety Report 8075971-5 (Version None)
Quarter: 2012Q1

REPORT INFORMATION
  Report Type: 
  Country: None (occurrence: None)
  Receive Date: 20120127
  Receipt Date: 20110114
  Transmission Date: 20120608
  Serious: No
  Sender: FDA-Public Use
  Company Number: US-GLAXOSMITHKLINE-A0907447A

PATIENT
  Age: 49 Year
  Sex: Female
  Weight: 59.1 kg

DRUGS (1)
  1. WELLBUTRIN [Suspect]
     Indication: PRODUCT USED FOR UNKNOWN INDICATION
     Dosage: 75MG UNKNOWN
     Route: 065
     Dates: start: 20100525, end: 20100630

REACTIONS (5)
  - TACHYPHRENIA [None]
  - ANXIETY [None]
  - AGITATION [None]
  - POST-TRAUMATIC STRESS DISORDER [None]
  - DRUG INEFFECTIVE [None]
